FAERS Safety Report 13622273 (Version 1)
Quarter: 2017Q2

REPORT INFORMATION
  Report Type: Spontaneous
  Country: US (occurrence: US)
  Receive Date: 20170607
  Receipt Date: 20170607
  Transmission Date: 20170830
  Serious: Yes (Disabling)
  Sender: FDA-Public Use
  Company Number: None

PATIENT
  Age: 61 Year
  Sex: Female
  Weight: 40.41 kg

DRUGS (17)
  1. IBUPROFEN. [Concomitant]
     Active Substance: IBUPROFEN
  2. TOPIRAMATE. [Concomitant]
     Active Substance: TOPIRAMATE
  3. LOPERAMIDE [Concomitant]
     Active Substance: LOPERAMIDE
  4. NUTRITIONAL SUPPLEMENTS (BOOST BREEZE) [Concomitant]
  5. PREDNISONE. [Concomitant]
     Active Substance: PREDNISONE
  6. PROCHLORPERAZINE. [Concomitant]
     Active Substance: PROCHLORPERAZINE
  7. DICYCLOMINE [Suspect]
     Active Substance: DICYCLOMINE HYDROCHLORIDE
     Indication: MUSCLE SPASMS
     Route: 048
     Dates: start: 20170517, end: 20170520
  8. KRILL OIL [Concomitant]
     Active Substance: DIETARY SUPPLEMENT
  9. UMECLIDINIUM BROMIDE (INCRUSE ELLIPTA) [Concomitant]
  10. SUMATRIPTAN SUCCINATE. [Concomitant]
     Active Substance: SUMATRIPTAN SUCCINATE
  11. TIMOLOL MALEATE. [Concomitant]
     Active Substance: TIMOLOL MALEATE
  12. VITAMIN D [Concomitant]
     Active Substance: CHOLECALCIFEROL
  13. DICYCLOMINE [Suspect]
     Active Substance: DICYCLOMINE HYDROCHLORIDE
     Indication: ABDOMINAL PAIN
     Route: 048
     Dates: start: 20170517, end: 20170520
  14. DICYCLOMINE [Suspect]
     Active Substance: DICYCLOMINE HYDROCHLORIDE
     Indication: IRRITABLE BOWEL SYNDROME
     Route: 048
     Dates: start: 20170517, end: 20170520
  15. DIGESTIVE AIDS MIXTURE OR TBEC [Concomitant]
  16. DIVALPROEX [Concomitant]
     Active Substance: DIVALPROEX SODIUM
  17. LIDOCAINE. [Concomitant]
     Active Substance: LIDOCAINE

REACTIONS (3)
  - Muscular weakness [None]
  - Hypersomnia [None]
  - Dysstasia [None]

NARRATIVE: CASE EVENT DATE: 20170517
